FAERS Safety Report 23075195 (Version 1)
Quarter: 2023Q4

REPORT INFORMATION
  Report Type: Spontaneous
  Country: US (occurrence: US)
  Receive Date: 20231017
  Receipt Date: 20231017
  Transmission Date: 20240109
  Serious: Yes (Life-Threatening, Hospitalization)
  Sender: FDA-Public Use
  Company Number: US-MYLANLABS-2023M1108833

PATIENT
  Age: 81 Year
  Sex: Male

DRUGS (7)
  1. METOPROLOL [Suspect]
     Active Substance: METOPROLOL
     Indication: Product used for unknown indication
     Dosage: UNK
     Route: 065
  2. AMLODIPINE [Suspect]
     Active Substance: AMLODIPINE BESYLATE
     Indication: Product used for unknown indication
     Dosage: UNK
     Route: 065
  3. INSULIN NOS [Suspect]
     Active Substance: INSULIN NOS
     Indication: Hyperkalaemia
     Dosage: UNK
     Route: 065
  4. GLUCAGON [Suspect]
     Active Substance: GLUCAGON\GLUCAGON HYDROCHLORIDE\WATER
     Indication: Bradycardia
     Dosage: UNK
     Route: 065
  5. CALCIUM GLUCONATE [Suspect]
     Active Substance: CALCIUM GLUCONATE
     Indication: Bradycardia
     Dosage: UNK
     Route: 065
  6. ATROPINE [Concomitant]
     Active Substance: ATROPINE
     Indication: Bradycardia
     Dosage: UNK
     Route: 065
  7. DEXTROSE [Concomitant]
     Active Substance: DEXTROSE\DEXTROSE MONOHYDRATE
     Indication: Product used for unknown indication
     Dosage: UNK
     Route: 065

REACTIONS (4)
  - BRASH syndrome [Recovering/Resolving]
  - Atrial fibrillation [Recovering/Resolving]
  - Drug ineffective for unapproved indication [Unknown]
  - Off label use [Unknown]
